FAERS Safety Report 20134539 (Version 1)
Quarter: 2021Q4

REPORT INFORMATION
  Report Type: Spontaneous
  Country: FR (occurrence: FR)
  Receive Date: 20211201
  Receipt Date: 20211201
  Transmission Date: 20220303
  Serious: Yes (Other)
  Sender: FDA-Public Use
  Company Number: None

PATIENT
  Age: 59 Year
  Sex: Female
  Weight: 43 kg

DRUGS (4)
  1. ZOLEDRONIC ACID [Suspect]
     Active Substance: ZOLEDRONIC ACID
     Indication: Osteoporotic fracture
     Dosage: 1 DOSAGE FORM, CYCLIC
     Route: 041
     Dates: start: 2014, end: 2021
  2. LAMALINE [Concomitant]
     Indication: Product used for unknown indication
     Dosage: 3 DOSAGE FORM, PRN
     Route: 048
  3. TERIPARATIDE [Concomitant]
     Active Substance: TERIPARATIDE
     Indication: Product used for unknown indication
     Dosage: UNK(INCONNUE)
     Route: 058
  4. LEVOTHYROXINE [Concomitant]
     Active Substance: LEVOTHYROXINE
     Indication: Product used for unknown indication
     Dosage: 87.5 UG, QD
     Route: 048

REACTIONS (1)
  - Osteonecrosis of jaw [Recovering/Resolving]

NARRATIVE: CASE EVENT DATE: 20210701
